FAERS Safety Report 6566563-5 (Version None)
Quarter: 2010Q1

REPORT INFORMATION
  Report Type: 
  Country: None (occurrence: None)
  Receive Date: 20100202
  Receipt Date: 20100122
  Transmission Date: 20100710
  Serious: Yes (Hospitalization)
  Sender: FDA-Public Use
  Company Number: FR-PFIZER INC-2010009654

PATIENT

DRUGS (1)
  1. SUNITINIB MALATE [Suspect]
     Dosage: 37.5 MG, 1X/DAY

REACTIONS (1)
  - GENERAL PHYSICAL HEALTH DETERIORATION [None]
